FAERS Safety Report 4984605-5 (Version None)
Quarter: 2006Q2

REPORT INFORMATION
  Report Type: 
  Country: None (occurrence: None)
  Receive Date: 20060426
  Receipt Date: 20060426
  Transmission Date: 20061013
  Serious: Yes (Hospitalization)
  Sender: FDA-Public Use
  Company Number: None

PATIENT
  Age: 80 Year
  Sex: Male
  Weight: 83.6 kg

DRUGS (12)
  1. PROPOXYPHENE HYDROCHLORIDE [Suspect]
     Indication: TOOTHACHE
     Dosage: Q6H
  2. FELODIPINE [Concomitant]
  3. LOVASTATIN [Concomitant]
  4. MOMETASONE FUROATE [Concomitant]
  5. ATENOLOL [Concomitant]
  6. POTASSIUM CHLORIDE [Concomitant]
  7. HYDRALAZINE HCL [Concomitant]
  8. ALBUTEROL [Concomitant]
  9. IPRATROPIUM BROMIDE [Concomitant]
  10. LISINOPRIL [Concomitant]
  11. FUROSEMIDE [Concomitant]
  12. CLOTRIMAZOLE [Concomitant]

REACTIONS (2)
  - BRADYCARDIA [None]
  - HYPOTENSION [None]
